FAERS Safety Report 15267943 (Version 1)
Quarter: 2018Q3

REPORT INFORMATION
  Report Type: Spontaneous
  Country: US (occurrence: US)
  Receive Date: 20180725
  Receipt Date: 20180725
  Transmission Date: 20181010
  Serious: Yes (Other)
  Sender: FDA-Public Use
  Company Number: None

PATIENT
  Age: 54 Year
  Sex: Female
  Weight: 85.5 kg

DRUGS (12)
  1. LOPID [Concomitant]
     Active Substance: GEMFIBROZIL
  2. BOTOX [Concomitant]
     Active Substance: ONABOTULINUMTOXINA
  3. MOBIC [Concomitant]
     Active Substance: MELOXICAM
  4. ZOCOR [Concomitant]
     Active Substance: SIMVASTATIN
  5. VALSARTAN AND HYDROCLOROTHIAZIDE TABLETS, USP 320/25 MG [Suspect]
     Active Substance: HYDROCHLOROTHIAZIDE\VALSARTAN
     Indication: HYPERTENSION
     Dosage: ?          QUANTITY:1 TABLET(S);?
     Route: 048
  6. NORVASC [Concomitant]
     Active Substance: AMLODIPINE BESYLATE
  7. VITAMIN B12 [Concomitant]
     Active Substance: CYANOCOBALAMIN
  8. METATOPOROL [Concomitant]
  9. NEXIUM [Concomitant]
     Active Substance: ESOMEPRAZOLE MAGNESIUM
  10. XANAX [Concomitant]
     Active Substance: ALPRAZOLAM
  11. FIORICET [Concomitant]
     Active Substance: ACETAMINOPHEN\BUTALBITAL\CAFFEINE
  12. ASPIRIN 80 [Concomitant]

REACTIONS (2)
  - Benign breast neoplasm [None]
  - Product contamination [None]

NARRATIVE: CASE EVENT DATE: 20170915
